FAERS Safety Report 9323314 (Version 2)
Quarter: 2013Q3

REPORT INFORMATION
  Report Type: Spontaneous
  Country: US (occurrence: US)
  Receive Date: 20130603
  Receipt Date: 20130708
  Transmission Date: 20140515
  Serious: Yes (Hospitalization, Other)
  Sender: FDA-Public Use
  Company Number: US-ABBOTT-13P-163-1096669-00

PATIENT
  Age: 59 Year
  Sex: Female
  Weight: 59.02 kg

DRUGS (19)
  1. PROMETRIUM [Suspect]
     Indication: INSOMNIA
     Dosage: AT BED TIME
     Dates: start: 20090925
  2. PROMETRIUM [Suspect]
     Dosage: QUANTITY 14; REFILLS 5
     Route: 048
     Dates: start: 20110621
  3. PROMETRIUM [Suspect]
     Dosage: QUANTITY 60; REFILLS 1
     Route: 048
     Dates: start: 20110721, end: 20120508
  4. PROMETRIUM [Suspect]
     Dosage: QUANTITY 60; REFILLS 2
     Route: 048
     Dates: start: 20110722
  5. PROMETRIUM [Suspect]
     Dosage: QUANTITY 60; REFILLS 4
     Route: 048
     Dates: start: 20120508
  6. PROMETRIUM [Suspect]
     Dosage: QUANTITY 30; REFILLS 12
     Route: 048
     Dates: start: 20121116, end: 20130423
  7. VIVELLE DOT [Concomitant]
     Indication: INSOMNIA
     Dosage: PATCH SEMIWEEKLY; QUANTITY 8; REFILLS 3
     Route: 062
     Dates: start: 20120702
  8. VIVELLE DOT [Concomitant]
     Dosage: PATCH SEMIWEEKLY; QUANTITY 8; REFILLS 3
     Route: 062
     Dates: start: 20120927
  9. UNKNOWN VITAMINS [Concomitant]
     Indication: VITAMIN SUPPLEMENTATION
  10. VIVELLE [Concomitant]
     Indication: INSOMNIA
     Dosage: PATCH SEMIWEEKLY 0.025; QUANTITIY 8; REFILLS 5
     Route: 062
     Dates: start: 20110621, end: 20111111
  11. VIVELLE [Concomitant]
     Dosage: PATCH SEMIWEEKLY 0.037; QUANTITIY 8; REFILLS 12
     Route: 062
     Dates: start: 20110701
  12. VIVELLE [Concomitant]
     Dosage: PATCH SEMIWEEKLY 0.037; QUANTITIY 8; REFILLS 12
     Route: 062
     Dates: start: 20121231, end: 20130325
  13. VIVELLE [Concomitant]
     Dosage: PATCH SEMIWEEKLY 0.05; QUANTITIY 8; REFILLS 12
     Route: 062
     Dates: start: 20130325
  14. VIVELLE [Concomitant]
     Dosage: PATCH SEMIWEEKLY 0.075; QUANTITIY 9; REFILLS 3
     Route: 062
     Dates: start: 20130411
  15. EFFEXOR XR [Concomitant]
     Indication: PRODUCT USED FOR UNKNOWN INDICATION
     Dosage: CP 24 EXTENDED-RELEASE; QUANTITIY 30; REFILLS 1
     Route: 048
     Dates: start: 20130606
  16. LEVLITE [Concomitant]
     Indication: PRODUCT USED FOR UNKNOWN INDICATION
     Dosage: 0.1-20 MG-MCG; QUANTITIY 28; REFILLS 0
     Route: 048
     Dates: start: 20090925
  17. PROGESTERONE [Concomitant]
     Indication: PRODUCT USED FOR UNKNOWN INDICATION
     Dosage: HS; QUANTITIY 30; REFILLS 11
     Route: 048
     Dates: start: 20130423
  18. PROGESTERONE [Concomitant]
     Dosage: QUANTITIY 60; REFILLS 6
     Route: 048
     Dates: start: 20130522
  19. TRAZODONE [Concomitant]
     Indication: PRODUCT USED FOR UNKNOWN INDICATION
     Dosage: QHS; QUANTITIY 20; REFILLS 0
     Route: 048
     Dates: start: 20130520

REACTIONS (16)
  - Groin pain [Recovered/Resolved]
  - Ovarian cyst [Recovered/Resolved]
  - Back pain [Recovered/Resolved]
  - Drug ineffective for unapproved indication [Not Recovered/Not Resolved]
  - Off label use [Unknown]
  - Insomnia [Unknown]
  - Viral infection [Recovered/Resolved]
  - Hypoaesthesia [Unknown]
  - Paraesthesia [Unknown]
  - Ovarian disorder [Unknown]
  - Vaginal haemorrhage [Unknown]
  - Abdominal pain lower [Unknown]
  - Insomnia [Unknown]
  - Vaginal haemorrhage [Unknown]
  - Night sweats [Unknown]
  - Feeling hot [Unknown]
